FAERS Safety Report 12723513 (Version 6)
Quarter: 2020Q3

REPORT INFORMATION
  Report Type: Spontaneous
  Country: US (occurrence: US)
  Receive Date: 20160908
  Receipt Date: 20200709
  Transmission Date: 20201102
  Serious: No
  Sender: FDA-Public Use
  Company Number: US-PFIZER INC-2016421158

PATIENT
  Age: 58 Year
  Sex: Female
  Weight: 68 kg

DRUGS (12)
  1. MOTRIN [Concomitant]
     Active Substance: IBUPROFEN
     Dosage: UNK
  2. XELJANZ XR [Suspect]
     Active Substance: TOFACITINIB CITRATE
     Indication: RHEUMATOID ARTHRITIS
     Dosage: 11 MG, DAILY
     Route: 048
     Dates: start: 20160831, end: 2019
  3. DULOXETINE. [Concomitant]
     Active Substance: DULOXETINE
     Dosage: UNK
  4. VITAMIN D3 [Concomitant]
     Active Substance: CHOLECALCIFEROL
     Dosage: UNK
  5. PANTOPRAZOLE [Concomitant]
     Active Substance: PANTOPRAZOLE
     Dosage: UNK
  6. PREDNISONE. [Concomitant]
     Active Substance: PREDNISONE
     Dosage: UNK
  7. POTASSIUM [Concomitant]
     Active Substance: POTASSIUM
     Dosage: UNK
  8. METHOTREXATE. [Concomitant]
     Active Substance: METHOTREXATE
     Dosage: UNK
  9. FISH OIL [Concomitant]
     Active Substance: FISH OIL
     Dosage: UNK
  10. CHLORTHALIDONE. [Concomitant]
     Active Substance: CHLORTHALIDONE
     Dosage: UNK
  11. FOLIC ACID. [Concomitant]
     Active Substance: FOLIC ACID
     Dosage: UNK
  12. RESTASIS [Concomitant]
     Active Substance: CYCLOSPORINE
     Dosage: UNK

REACTIONS (9)
  - Ear pain [Unknown]
  - Abdominal pain upper [Unknown]
  - Herpes zoster [Unknown]
  - Bronchitis [Unknown]
  - Oropharyngeal pain [Unknown]
  - Liver disorder [Unknown]
  - Nasopharyngitis [Not Recovered/Not Resolved]
  - Pain in jaw [Unknown]
  - Headache [Unknown]

NARRATIVE: CASE EVENT DATE: 20160901
